FAERS Safety Report 8776841 (Version 1)
Quarter: 2012Q4

REPORT INFORMATION
  Report Type: 
  Country: US (occurrence: US)
  Receive Date: 20120911
  Receipt Date: 20120911
  Transmission Date: 20130627
  Serious: Yes (Other)
  Sender: FDA-Public Use
  Company Number: US-JNJFOC-20120900322

PATIENT
  Sex: Male
  Weight: 2.1 kg

DRUGS (2)
  1. TYLENOL [Suspect]
     Indication: FOETAL EXPOSURE DURING PREGNANCY
     Route: 064
  2. TYLENOL [Suspect]
     Indication: EXPOSURE DURING BREAST FEEDING
     Route: 064

REACTIONS (5)
  - Low birth weight baby [Unknown]
  - Premature baby [Unknown]
  - Breast feeding [Unknown]
  - Exposure during breast feeding [None]
  - Maternal drugs affecting foetus [None]
